FAERS Safety Report 7880667-6 (Version None)
Quarter: 2011Q4

REPORT INFORMATION
  Report Type: 
  Country: None (occurrence: None)
  Receive Date: 20111101
  Receipt Date: 20111027
  Transmission Date: 20120403
  Serious: Yes (Death, Disabling, Other)
  Sender: FDA-Public Use
  Company Number: US-CELGENEUS-163-21880-11012807

PATIENT
  Sex: Female

DRUGS (5)
  1. REVLIMID [Suspect]
     Dosage: 5 MILLIGRAM
     Route: 048
     Dates: start: 20101229, end: 20110129
  2. NEUPOGEN [Concomitant]
     Route: 065
  3. PROCRIT [Concomitant]
     Route: 065
  4. RED BLOOD CELLS [Concomitant]
     Dosage: 2 UNITS
     Route: 041
     Dates: start: 20110317
  5. RED BLOOD CELLS [Concomitant]
     Dosage: 3 UNITS
     Route: 041
     Dates: start: 20110428

REACTIONS (4)
  - ACUTE MYELOID LEUKAEMIA [None]
  - DEATH [None]
  - MYELODYSPLASTIC SYNDROME TRANSFORMATION [None]
  - ANAEMIA [None]
